FAERS Safety Report 23096310 (Version 6)
Quarter: 2023Q4

REPORT INFORMATION
  Report Type: Report from Study
  Country: CN (occurrence: CN)
  Receive Date: 20231023
  Receipt Date: 20231129
  Transmission Date: 20240110
  Serious: Yes (Hospitalization)
  Sender: FDA-Public Use
  Company Number: CN-JNJFOC-20231003483

PATIENT
  Age: 58 Year
  Sex: Female
  Weight: 57.5 kg

DRUGS (5)
  1. TALQUETAMAB [Suspect]
     Active Substance: TALQUETAMAB
     Indication: Plasma cell myeloma
     Dosage: STARTING DOSE 1; MED KIT 556683/84
     Route: 058
     Dates: start: 20230721
  2. TALQUETAMAB [Suspect]
     Active Substance: TALQUETAMAB
     Dosage: STARTING DOSE 2
     Route: 058
     Dates: start: 20230724
  3. TALQUETAMAB [Suspect]
     Active Substance: TALQUETAMAB
     Dosage: STARTING DOSE 3
     Route: 058
     Dates: start: 20230731
  4. TALQUETAMAB [Suspect]
     Active Substance: TALQUETAMAB
     Dosage: C1D1
     Route: 058
     Dates: start: 20230803
  5. TALQUETAMAB [Suspect]
     Active Substance: TALQUETAMAB
     Dosage: C3D1
     Route: 058
     Dates: start: 20230928

REACTIONS (1)
  - Progressive multifocal leukoencephalopathy [Not Recovered/Not Resolved]

NARRATIVE: CASE EVENT DATE: 20230930
